FAERS Safety Report 21306732 (Version 1)
Quarter: 2022Q3

REPORT INFORMATION
  Report Type: Spontaneous
  Country: SI (occurrence: SI)
  Receive Date: 20220908
  Receipt Date: 20220908
  Transmission Date: 20221027
  Serious: Yes (Other)
  Sender: FDA-Public Use
  Company Number: SI-SUN PHARMACEUTICAL INDUSTRIES LTD-2022R1-353552

PATIENT
  Age: 76 Year
  Sex: Female

DRUGS (1)
  1. DOXYCYCLINE [Suspect]
     Active Substance: DOXYCYCLINE
     Indication: Tularaemia
     Dosage: 100 MILLIGRAM, BID
     Route: 065

REACTIONS (1)
  - Therapy partial responder [Unknown]
